FAERS Safety Report 9105853 (Version 3)
Quarter: 2013Q1

REPORT INFORMATION
  Report Type: Spontaneous
  Country: JP (occurrence: JP)
  Receive Date: 20130221
  Receipt Date: 20130321
  Transmission Date: 20140127
  Serious: Yes (Death, Hospitalization)
  Sender: FDA-Public Use
  Company Number: JP-B.I. PHARMACEUTICALS,INC./RIDGEFIELD-2013-BI-04139NB

PATIENT
  Age: 90 Year
  Sex: Male
  Weight: 50 kg

DRUGS (9)
  1. PRADAXA [Suspect]
     Indication: ATRIAL FIBRILLATION
     Dosage: 220 MG
     Route: 048
     Dates: start: 20120413
  2. DIART [Concomitant]
     Indication: CARDIAC FAILURE
     Dosage: 30 MG
     Route: 048
     Dates: start: 20121027
  3. SPIRONOLACTONE [Concomitant]
     Indication: CARDIAC FAILURE
     Dosage: 25 MG
     Route: 048
  4. LASIX [Concomitant]
     Indication: CARDIAC FAILURE
     Dosage: 20 MG
     Route: 065
     Dates: end: 20121026
  5. PARIET [Concomitant]
     Dosage: 10 MG
     Route: 065
     Dates: end: 20120822
  6. CALNATE [Concomitant]
     Indication: HYPERTENSION
     Dosage: 5 MG
     Route: 065
     Dates: start: 20100130, end: 20120511
  7. ZYLORIC [Concomitant]
     Indication: HYPERURICAEMIA
     Dosage: 100 MG
     Route: 065
     Dates: end: 20120822
  8. CLARITHROMYCIN [Concomitant]
     Indication: PRODUCTIVE COUGH
     Dosage: 200 MG
     Route: 065
     Dates: start: 20120623, end: 201208
  9. MUCOSOLVAN L [Concomitant]
     Indication: PRODUCTIVE COUGH
     Dosage: 45 MG
     Route: 065
     Dates: start: 20120623, end: 201208

REACTIONS (4)
  - Shock haemorrhagic [Fatal]
  - Femur fracture [Unknown]
  - Fall [Unknown]
  - Activated partial thromboplastin time prolonged [Unknown]
